FAERS Safety Report 14475973 (Version 5)
Quarter: 2018Q4

REPORT INFORMATION
  Report Type: Spontaneous
  Country: DE (occurrence: DE)
  Receive Date: 20180201
  Receipt Date: 20181009
  Transmission Date: 20190204
  Serious: Yes (Other)
  Sender: FDA-Public Use
  Company Number: DE-PFIZER INC-2018017336

PATIENT
  Age: 53 Year
  Sex: Male

DRUGS (2)
  1. METFORMIN [Concomitant]
     Active Substance: METFORMIN HYDROCHLORIDE
     Indication: DIABETES MELLITUS
     Dosage: 850 MG, ADMINISTRATION FOR YEARS
  2. TREVILOR RETARD [Suspect]
     Active Substance: VENLAFAXINE HYDROCHLORIDE
     Dosage: 150 MG, IMPORTED DRUG
     Dates: end: 201801

REACTIONS (10)
  - Diarrhoea [Recovering/Resolving]
  - Abdominal pain upper [Recovering/Resolving]
  - Product complaint [Recovering/Resolving]
  - Product label issue [Recovering/Resolving]
  - Product substitution issue [Unknown]
  - Mood altered [Recovering/Resolving]
  - Dizziness [Recovering/Resolving]
  - Drug ineffective [Unknown]
  - Depressed mood [Unknown]
  - Withdrawal syndrome [Recovering/Resolving]

NARRATIVE: CASE EVENT DATE: 201801
